FAERS Safety Report 6084994-7 (Version None)
Quarter: 2009Q1

REPORT INFORMATION
  Report Type: 
  Country: None (occurrence: None)
  Receive Date: 20090220
  Receipt Date: 20090130
  Transmission Date: 20090719
  Serious: Yes (Hospitalization)
  Sender: FDA-Public Use
  Company Number: AT-ASTRAZENECA-2009PK00507

PATIENT
  Age: 27157 Day
  Sex: Female
  Weight: 44.2 kg

DRUGS (14)
  1. ARIMIDEX [Suspect]
     Indication: BREAST CANCER
     Route: 048
     Dates: start: 20070124
  2. HYDAL [Concomitant]
     Indication: PAIN
     Route: 048
     Dates: start: 20080217
  3. ACEMIN [Concomitant]
     Indication: HYPERTENSION
     Route: 048
  4. FOSAMAX [Concomitant]
     Indication: OSTEOPOROSIS
     Route: 048
     Dates: start: 20080216
  5. COMBI- KALZ [Concomitant]
     Indication: OSTEOPOROSIS
     Route: 048
     Dates: start: 20080216
  6. PANTOPRAZOLE SODIUM [Concomitant]
     Indication: GASTRIC ULCER
     Route: 048
  7. TRAMADOL HCL [Concomitant]
     Indication: PAIN
     Route: 048
     Dates: start: 20080211
  8. NOVALGIN [Concomitant]
     Indication: PAIN
     Route: 048
     Dates: start: 20080212
  9. MEXALEN [Concomitant]
     Indication: PAIN
     Route: 048
     Dates: start: 20080217
  10. SIMVASTATIN [Concomitant]
     Indication: HYPERLIPIDAEMIA
     Route: 048
     Dates: start: 20081101
  11. MADOPAR [Concomitant]
     Indication: PARKINSON'S DISEASE
     Dosage: THREE AND A QUARTER DF DAILY
     Route: 048
     Dates: start: 20081101
  12. EXELON [Concomitant]
     Indication: DEMENTIA
     Route: 061
     Dates: start: 20081101
  13. BETAISODONA [Concomitant]
     Indication: INGROWING NAIL
     Route: 061
     Dates: start: 20081101
  14. FUCIDINE CAP [Concomitant]
     Indication: INGROWING NAIL
     Route: 061
     Dates: start: 20081101

REACTIONS (4)
  - CEREBRAL ISCHAEMIA [None]
  - DRUG TOXICITY [None]
  - EMBOLISM [None]
  - PYELONEPHRITIS [None]
